FAERS Safety Report 4608807-2 (Version None)
Quarter: 2005Q1

REPORT INFORMATION
  Report Type: 
  Country: None (occurrence: None)
  Receive Date: 20050311
  Receipt Date: 20050223
  Transmission Date: 20050727
  Serious: No
  Sender: FDA-Public Use
  Company Number: 430004N05FRA

PATIENT
  Age: 41 Year
  Sex: Male

DRUGS (3)
  1. MITOXANTRONE [Suspect]
     Indication: MULTIPLE SCLEROSIS
     Dosage: 15 MG 1 IN 1 DAY, INTRAVENOUS
     Route: 042
     Dates: start: 20041217, end: 20041217
  2. PAROXETINE HYDROCHLORIDE [Concomitant]
  3. BROMAZEPAM [Concomitant]

REACTIONS (1)
  - NEUTROPENIA [None]
